FAERS Safety Report 12548407 (Version 1)
Quarter: 2016Q3

REPORT INFORMATION
  Report Type: Spontaneous
  Country: US (occurrence: None)
  Receive Date: 20160711
  Receipt Date: 20160711
  Transmission Date: 20161109
  Serious: Yes (Life-Threatening)
  Sender: FDA-Public Use
  Company Number: None

PATIENT
  Age: 84 Year
  Sex: Male
  Weight: 76.8 kg

DRUGS (2)
  1. OLANZAPINE. [Suspect]
     Active Substance: OLANZAPINE
     Indication: AGITATION
     Route: 048
     Dates: start: 20160510, end: 20160510
  2. HALOPERIDOL. [Suspect]
     Active Substance: HALOPERIDOL
     Route: 042
     Dates: start: 20160509, end: 20160509

REACTIONS (6)
  - Disorientation [None]
  - Agitation [None]
  - Pneumonia aspiration [None]
  - Autonomic nervous system imbalance [None]
  - Aggression [None]
  - Neuroleptic malignant syndrome [None]

NARRATIVE: CASE EVENT DATE: 20160514
